FAERS Safety Report 8333400-8 (Version None)
Quarter: 2012Q2

REPORT INFORMATION
  Report Type: 
  Country: None (occurrence: None)
  Receive Date: 20120503
  Receipt Date: 20120427
  Transmission Date: 20120825
  Serious: Yes (Congenital Anomaly, Other)
  Sender: FDA-Public Use
  Company Number: US-PFIZER INC-2012103234

PATIENT
  Sex: Male
  Weight: 3.946 kg

DRUGS (4)
  1. ZOLOFT [Suspect]
     Indication: BIPOLAR DISORDER
  2. ZOLOFT [Suspect]
     Indication: DEPRESSION
     Dosage: 200 MG, 2X/DAY (TWO TABLETS IN THE MORNING AND TWO TABLETS AT BED TIME)
     Route: 064
     Dates: start: 19990101, end: 20021201
  3. TRAZODONE [Concomitant]
     Dosage: 100 MG
     Route: 064
  4. SEROQUEL [Concomitant]
     Dosage: 400 MG
     Route: 064

REACTIONS (7)
  - CONGENITAL ANOMALY [None]
  - CONGENITAL NOSE MALFORMATION [None]
  - CONGENITAL EYE DISORDER [None]
  - DYSPNOEA [None]
  - SKULL MALFORMATION [None]
  - MATERNAL EXPOSURE TIMING UNSPECIFIED [None]
  - FOETAL DAMAGE [None]
